FAERS Safety Report 5123033-9 (Version None)
Quarter: 2006Q4

REPORT INFORMATION
  Report Type: 
  Country: None (occurrence: None)
  Receive Date: 20061005
  Receipt Date: 20060928
  Transmission Date: 20070319
  Serious: Yes (Hospitalization)
  Sender: FDA-Public Use
  Company Number: 2006-05152

PATIENT
  Age: 31 Year
  Sex: Female

DRUGS (1)
  1. NOVAREL (WATSON LABORATORIES) (CHORIONIC GONADOTROPIN) INJECTION, 10,0 [Suspect]
     Indication: IN VITRO FERTILISATION

REACTIONS (2)
  - OVARIAN HYPERSTIMULATION SYNDROME [None]
  - URETERIC OBSTRUCTION [None]
